FAERS Safety Report 8572995-6 (Version None)
Quarter: 2012Q3

REPORT INFORMATION
  Report Type: 
  Country: None (occurrence: None)
  Receive Date: 20120806
  Receipt Date: 20120802
  Transmission Date: 20120928
  Serious: Yes (Other)
  Sender: FDA-Public Use
  Company Number: US-PFIZER INC-2012189152

PATIENT
  Sex: Female

DRUGS (1)
  1. PRISTIQ [Suspect]
     Dosage: UNK
     Dates: end: 20120701

REACTIONS (11)
  - CONFUSIONAL STATE [None]
  - BODY TEMPERATURE INCREASED [None]
  - EYE DISORDER [None]
  - LOSS OF CONSCIOUSNESS [None]
  - PYREXIA [None]
  - COORDINATION ABNORMAL [None]
  - HEART RATE INCREASED [None]
  - NAUSEA [None]
  - COMA [None]
  - RESTLESSNESS [None]
  - VOMITING [None]
